FAERS Safety Report 12327618 (Version 1)
Quarter: 2016Q2

REPORT INFORMATION
  Report Type: Spontaneous
  Country: FR (occurrence: FR)
  Receive Date: 20160503
  Receipt Date: 20160503
  Transmission Date: 20160815
  Serious: Yes (Death, Hospitalization)
  Sender: FDA-Public Use
  Company Number: FR-JNJFOC-20160427907

PATIENT
  Age: 86 Year
  Sex: Female

DRUGS (12)
  1. HEMIGOXINE [Concomitant]
     Active Substance: DIGOXIN
     Route: 065
  2. XARELTO [Suspect]
     Active Substance: RIVAROXABAN
     Indication: ARRHYTHMIA
     Route: 048
     Dates: start: 20160215, end: 20160215
  3. LEVOTHYROX [Concomitant]
     Active Substance: LEVOTHYROXINE
     Route: 065
  4. CORGARD [Concomitant]
     Active Substance: NADOLOL
     Route: 065
  5. EUPRESSYL [Concomitant]
     Active Substance: URAPIDIL
     Route: 065
  6. MOPRAL [Concomitant]
     Active Substance: OMEPRAZOLE SODIUM
     Route: 065
  7. XARELTO [Suspect]
     Active Substance: RIVAROXABAN
     Indication: CEREBROVASCULAR ACCIDENT PROPHYLAXIS
     Route: 048
     Dates: start: 20160215, end: 20160215
  8. LERCAN [Concomitant]
     Active Substance: LERCANIDIPINE
     Route: 065
  9. MELILOTUS OFFICINALIS W/RUTOSIDE [Concomitant]
     Route: 065
  10. TEMESTA [Concomitant]
     Active Substance: LORAZEPAM
     Route: 065
  11. TANGANIL [Concomitant]
     Active Substance: ACETYLLEUCINE
     Route: 065
  12. COOLMETEC [Concomitant]
     Active Substance: HYDROCHLOROTHIAZIDE\OLMESARTAN MEDOXOMIL
     Route: 065

REACTIONS (1)
  - Thrombosis [Fatal]

NARRATIVE: CASE EVENT DATE: 20160218
